FAERS Safety Report 9009418 (Version 1)
Quarter: 2013Q1

REPORT INFORMATION
  Report Type: Report from Study
  Country: CA (occurrence: CA)
  Receive Date: 20130111
  Receipt Date: 20130111
  Transmission Date: 20140127
  Serious: Yes (Other)
  Sender: FDA-Public Use
  Company Number: CA-JNJFOC-20130102694

PATIENT
  Sex: Female
  Weight: 75.5 kg

DRUGS (3)
  1. REMICADE [Suspect]
     Indication: RHEUMATOID ARTHRITIS
     Route: 042
     Dates: start: 20070301
  2. METHOTREXATE [Concomitant]
     Route: 065
  3. UNKNOWN MEDICATION [Concomitant]
     Route: 065

REACTIONS (3)
  - Tympanic membrane perforation [Recovered/Resolved]
  - Hypoacusis [Not Recovered/Not Resolved]
  - Ear discomfort [Recovered/Resolved]
